FAERS Safety Report 9312596 (Version 1)
Quarter: 2013Q2

REPORT INFORMATION
  Report Type: Report from Study
  Country: US (occurrence: US)
  Receive Date: 20130528
  Receipt Date: 20130528
  Transmission Date: 20140414
  Serious: Yes (Congenital Anomaly)
  Sender: FDA-Public Use
  Company Number: US-VIIV HEALTHCARE LIMITED-A1024619A

PATIENT
  Age: 0 None
  Sex: Female
  Weight: 1.2 kg

DRUGS (1)
  1. TRIZIVIR [Suspect]
     Indication: ANTIVIRAL TREATMENT
     Dosage: 2TAB PER DAY
     Route: 064
     Dates: start: 20121114

REACTIONS (3)
  - Congenital anomaly [Unknown]
  - Premature baby [Unknown]
  - Foetal exposure during pregnancy [Not Recovered/Not Resolved]
